FAERS Safety Report 6931274-0 (Version None)
Quarter: 2010Q3

REPORT INFORMATION
  Report Type: 
  Country: None (occurrence: None)
  Receive Date: 20100816
  Receipt Date: 20100807
  Transmission Date: 20110219
  Serious: No
  Sender: FDA-Public Use
  Company Number: IND1-FR-2010-0052

PATIENT
  Age: 21 Month
  Sex: Male

DRUGS (8)
  1. INDOMETHACIN [Suspect]
     Indication: CYSTINOSIS
     Dosage: 3 ML (1.5 ML, 2 IN 1 D) ORAL; 4ML (2 ML, 2 IN 1 D) ORAL
     Route: 048
     Dates: start: 20100317, end: 20100320
  2. INDOMETHACIN [Suspect]
     Indication: CYSTINOSIS
     Dosage: 3 ML (1.5 ML, 2 IN 1 D) ORAL; 4ML (2 ML, 2 IN 1 D) ORAL
     Route: 048
     Dates: start: 20100320, end: 20100320
  3. CYSTAGON [Concomitant]
  4. SODIUM BICARBONATE (SODIUM BICARBONATE) (SODIUM BICARBONATE) [Concomitant]
  5. CALCIDIA (CALCIUM CARBONATE) (CALCIUM CARBONATE) [Concomitant]
  6. PHOSPHONEUROS (MAGNESIUM GLYCEROPHOSPHATE, SODIUM PHOSPHATE DIBASIC, P [Concomitant]
  7. LEVOTHYROXINE SODIUM [Concomitant]
  8. UVESTEROL (ERGOCALCIFEROL, ASCORBIC ACID, TOCOPHEROL, RETINOL) (ERGOCA [Concomitant]

REACTIONS (3)
  - DRUG ERUPTION [None]
  - OFF LABEL USE [None]
  - RASH MACULO-PAPULAR [None]
